FAERS Safety Report 23321208 (Version 2)
Quarter: 2023Q4

REPORT INFORMATION
  Report Type: Spontaneous
  Country: IT (occurrence: IT)
  Receive Date: 20231220
  Receipt Date: 20231225
  Transmission Date: 20240110
  Serious: Yes (Other)
  Sender: FDA-Public Use
  Company Number: IT-SAMSUNG BIOEPIS-SB-2023-33437

PATIENT
  Sex: Female

DRUGS (5)
  1. ETANERCEPT [Suspect]
     Active Substance: ETANERCEPT
     Indication: Juvenile idiopathic arthritis
     Dosage: UNKNOWN
     Route: 058
  2. METHOTREXATE [Concomitant]
     Active Substance: METHOTREXATE
     Indication: Juvenile idiopathic arthritis
     Dosage: UNKNOWN
     Route: 065
  3. CANAKINUMAB [Concomitant]
     Active Substance: CANAKINUMAB
     Indication: Juvenile idiopathic arthritis
     Dosage: UNKNOWN
     Route: 065
  4. ANAKINRA [Concomitant]
     Active Substance: ANAKINRA
     Indication: Juvenile idiopathic arthritis
     Dosage: UNKNOWN
     Route: 065
  5. CYCLOSPORINE [Concomitant]
     Active Substance: CYCLOSPORINE
     Indication: Juvenile idiopathic arthritis
     Dosage: UNKNOWN
     Route: 065

REACTIONS (2)
  - Haemophagocytic lymphohistiocytosis [Unknown]
  - Drug ineffective [Unknown]
